FAERS Safety Report 12429547 (Version 1)
Quarter: 2016Q2

REPORT INFORMATION
  Report Type: Spontaneous
  Country: PT (occurrence: PT)
  Receive Date: 20160602
  Receipt Date: 20160602
  Transmission Date: 20160815
  Serious: Yes (Hospitalization, Other)
  Sender: FDA-Public Use
  Company Number: PT-MYLANLABS-2016M1022203

PATIENT

DRUGS (1)
  1. FLUOROURACIL. [Suspect]
     Active Substance: FLUOROURACIL
     Indication: CHEMOTHERAPY
     Dosage: 1400 MG/M2, UNK (WEEKLY PERFUSION 7 DAYS A WEEK FOR 5 WEEKS)
     Dates: start: 201310

REACTIONS (4)
  - Diarrhoea [Unknown]
  - Dysphagia [Unknown]
  - Mucosal inflammation [Unknown]
  - Odynophagia [Unknown]
